FAERS Safety Report 10085366 (Version 4)
Quarter: 2014Q2

REPORT INFORMATION
  Report Type: Other
  Country: US (occurrence: US)
  Receive Date: 20140417
  Receipt Date: 20140624
  Transmission Date: 20141212
  Serious: Yes (Other)
  Sender: FDA-Public Use
  Company Number: US-ACORDA-ACO_34955_2013

PATIENT
  Age: 53 Year
  Sex: Female

DRUGS (1)
  1. AMPYRA [Suspect]
     Indication: MULTIPLE SCLEROSIS
     Dosage: 10 MG, BID
     Route: 048
     Dates: start: 20100315, end: 201303

REACTIONS (12)
  - Visual impairment [Unknown]
  - Epistaxis [Unknown]
  - Sinusitis [Unknown]
  - Road traffic accident [Unknown]
  - Hypersomnia [Unknown]
  - Movement disorder [Unknown]
  - Spondylitis [Unknown]
  - Hypersensitivity [Unknown]
  - Adverse drug reaction [Unknown]
  - Adverse reaction [Unknown]
  - Emotional disorder [Unknown]
  - General physical health deterioration [Unknown]
